FAERS Safety Report 10383882 (Version 1)
Quarter: 2014Q1

REPORT INFORMATION
  Report Type: Spontaneous
  Country: US (occurrence: None)
  Receive Date: 20140306
  Receipt Date: 20140306
  Transmission Date: 20141002
  Serious: Yes (Other)
  Sender: FDA-Public Use
  Company Number: 163-21880-13106421

PATIENT
  Age: 54 Year
  Sex: Female
  Weight: 133.81 kg

DRUGS (9)
  1. REVLIMID (LENALIDOMIDE) (25 MILLIGRAM, CAPSULES) [Suspect]
     Indication: PLASMA CELL MYELOMA
     Route: 048
     Dates: start: 20130819, end: 2013
  2. DEXAMETHASONE(DEXAMETHASONE)(UNKNOWN) [Concomitant]
  3. LANTUS SOLOSTAR(INSULIN GLARGINE)(UNKNOWN) [Concomitant]
  4. BUMETANIDE(BUMETANIDE) (TABLETS) [Concomitant]
  5. DIGOXIN(DIGOXIN)(TABLETS) [Concomitant]
  6. DILTIAZEM(DILTIAZEM)(UNKNOWN) [Concomitant]
  7. KLOR-CON 10(POTASSIUM CHLORIDE)(UNKNOWN) [Concomitant]
  8. ALLOPURINOL(ALLOPURINOL)(UNKNOWN) [Concomitant]
  9. PLATELET(DIPYRIDAMOLE)(UNKNOWN) [Concomitant]

REACTIONS (1)
  - Platelet count decreased [None]
